FAERS Safety Report 4897482-8 (Version None)
Quarter: 2005Q4

REPORT INFORMATION
  Report Type: 
  Country: None (occurrence: None)
  Receive Date: 20051223
  Receipt Date: 20051115
  Transmission Date: 20060501
  Serious: No
  Sender: FDA-Public Use
  Company Number: 05P-163-0317214-00

PATIENT
  Age: 56 Year
  Sex: Female
  Weight: 41.7309 kg

DRUGS (12)
  1. HUMIRA [Suspect]
     Indication: CROHN'S DISEASE
     Dosage: 40 MG, 1 IN 2 WK, SUBCUTANEOUS
     Route: 058
     Dates: start: 20051101
  2. GABAPENTIN [Concomitant]
  3. FOLIC ACID [Concomitant]
  4. VENLAFAXINE HCL [Concomitant]
  5. GEMFIBROZIL [Concomitant]
  6. ACETAMINOPHEN [Concomitant]
  7. MAGNESIUM OXIDE [Concomitant]
  8. CITRACAL WITH VITAMIN D [Concomitant]
  9. CLONAZEPAM [Concomitant]
  10. MULTIVITAMIN [Concomitant]
  11. FLUCONAZOLE [Concomitant]
  12. LOMOTIL [Concomitant]

REACTIONS (2)
  - INJECTION SITE ERYTHEMA [None]
  - INJECTION SITE IRRITATION [None]
